FAERS Safety Report 8216024-2 (Version None)
Quarter: 2012Q1

REPORT INFORMATION
  Report Type: 
  Country: None (occurrence: None)
  Receive Date: 20120316
  Receipt Date: 20120306
  Transmission Date: 20120608
  Serious: Yes (Other)
  Sender: FDA-Public Use
  Company Number: JP-PFIZER INC-2012052729

PATIENT
  Age: 62 Year
  Sex: Male

DRUGS (8)
  1. ZETIA [Concomitant]
     Dosage: UNK
  2. PRAVASTATIN SODIUM [Concomitant]
     Dosage: UNK
  3. NOVORAPID [Concomitant]
     Dosage: UNK
  4. ACECOL [Concomitant]
     Dosage: UNK
  5. LANTUS [Concomitant]
     Dosage: 18 IU, 1X/DAY
  6. MIGLITOL [Suspect]
     Indication: TYPE 2 DIABETES MELLITUS
     Dosage: 150 MG, 3X/DAY
     Route: 048
     Dates: start: 20100311
  7. LANTUS [Concomitant]
     Dosage: 20 IU, 1X/DAY
     Dates: start: 20100826
  8. DIOVAN [Concomitant]
     Dosage: UNK

REACTIONS (2)
  - HYPOGLYCAEMIA [None]
  - FALL [None]
